FAERS Safety Report 10067909 (Version 1)
Quarter: 2014Q2

REPORT INFORMATION
  Report Type: Spontaneous
  Country: CN (occurrence: CN)
  Receive Date: 20140409
  Receipt Date: 20140409
  Transmission Date: 20141212
  Serious: Yes (Other)
  Sender: FDA-Public Use
  Company Number: CN-JNJFOC-20140400229

PATIENT
  Sex: Male

DRUGS (3)
  1. FENTANYL [Suspect]
     Indication: CANCER PAIN
     Dosage: 25 UG/HR 2 PATCHES.
     Route: 062
  2. OXYCONTIN [Suspect]
     Indication: CANCER PAIN
     Dosage: 40/80MG
     Route: 048
  3. OXYCONTIN [Suspect]
     Indication: CANCER PAIN
     Route: 048

REACTIONS (5)
  - Delirium [Recovered/Resolved]
  - Overdose [Recovered/Resolved]
  - Akathisia [Recovered/Resolved]
  - Conversion disorder [Recovered/Resolved]
  - Dysphoria [Recovered/Resolved]
